FAERS Safety Report 8074275-4 (Version None)
Quarter: 2012Q1

REPORT INFORMATION
  Report Type: 
  Country: None (occurrence: None)
  Receive Date: 20120126
  Receipt Date: 20120125
  Transmission Date: 20120608
  Serious: Yes (Hospitalization)
  Sender: FDA-Public Use
  Company Number: US-AMGEN-USASP2012005289

PATIENT
  Sex: Female

DRUGS (1)
  1. NPLATE [Suspect]
     Indication: IDIOPATHIC THROMBOCYTOPENIC PURPURA
     Dosage: UNK
     Dates: start: 20120101

REACTIONS (6)
  - NAUSEA [None]
  - PERIPHERAL COLDNESS [None]
  - PARAESTHESIA [None]
  - PLATELET COUNT DECREASED [None]
  - HEADACHE [None]
  - MOBILITY DECREASED [None]
